FAERS Safety Report 19724414 (Version 1)
Quarter: 2021Q3

REPORT INFORMATION
  Report Type: Spontaneous
  Country: US (occurrence: US)
  Receive Date: 20210819
  Receipt Date: 20210819
  Transmission Date: 20211014
  Serious: Yes (Other)
  Sender: FDA-Public Use
  Company Number: US-B.I. PHARMACEUTICALS,INC./RIDGEFIELD-2021-BI-121716

PATIENT
  Sex: Male

DRUGS (1)
  1. OFEV [Suspect]
     Active Substance: NINTEDANIB
     Indication: PRODUCT USED FOR UNKNOWN INDICATION
     Dosage: 150 MG PO BID
     Route: 048
     Dates: start: 20190815

REACTIONS (4)
  - Epistaxis [Unknown]
  - Vomiting [Unknown]
  - Dementia [Unknown]
  - Rhinorrhoea [Unknown]
